FAERS Safety Report 6252870-2 (Version None)
Quarter: 2009Q3

REPORT INFORMATION
  Report Type: 
  Country: None (occurrence: None)
  Receive Date: 20090701
  Receipt Date: 20090630
  Transmission Date: 20100115
  Serious: Yes (Other)
  Sender: FDA-Public Use
  Company Number: A0794608A

PATIENT
  Sex: Female

DRUGS (2)
  1. NICORETTE [Suspect]
     Indication: SMOKING CESSATION THERAPY
     Dosage: 2MG UNKNOWN
     Route: 002
  2. LITHIUM [Concomitant]

REACTIONS (4)
  - ARTHRITIS [None]
  - ASTHMA [None]
  - INTENTIONAL DRUG MISUSE [None]
  - MULTIPLE ALLERGIES [None]
